FAERS Safety Report 12014570 (Version 1)
Quarter: 2016Q1

REPORT INFORMATION
  Report Type: Spontaneous
  Country: FR (occurrence: FR)
  Receive Date: 20160205
  Receipt Date: 20160205
  Transmission Date: 20160526
  Serious: Yes (Disabling)
  Sender: FDA-Public Use
  Company Number: FR-BRISTOL-MYERS SQUIBB COMPANY-BMS-2016-005512

PATIENT
  Age: 65 Year
  Sex: Female

DRUGS (1)
  1. HYDREA [Suspect]
     Active Substance: HYDROXYUREA
     Indication: PRODUCT USED FOR UNKNOWN INDICATION
     Dosage: 1 DF, QWK
     Route: 048
     Dates: start: 20151219

REACTIONS (3)
  - Skin exfoliation [Unknown]
  - Off label use [Unknown]
  - Oedema [Unknown]

NARRATIVE: CASE EVENT DATE: 20160108
